FAERS Safety Report 5814723-0 (Version None)
Quarter: 2008Q3

REPORT INFORMATION
  Report Type: 
  Country: None (occurrence: None)
  Receive Date: 20080718
  Receipt Date: 20070612
  Transmission Date: 20090109
  Serious: No
  Sender: FDA-Public Use
  Company Number: US-KINGPHARMUSA00001-K200700717

PATIENT

DRUGS (4)
  1. LEVOXYL [Suspect]
     Route: 048
     Dates: start: 20020101
  2. LIPITOR [Concomitant]
  3. ZESTRIL [Concomitant]
  4. ACTONEL [Concomitant]

REACTIONS (1)
  - DYSPHAGIA [None]
